FAERS Safety Report 9667494 (Version 1)
Quarter: 2013Q4

REPORT INFORMATION
  Report Type: Spontaneous
  Country: US (occurrence: US)
  Receive Date: 20131104
  Receipt Date: 20131104
  Transmission Date: 20140711
  Serious: No
  Sender: FDA-Public Use
  Company Number: US-BIOGENIDEC-2013BI091583

PATIENT
  Age: 42 Year
  Sex: Female

DRUGS (11)
  1. TECFIDERA [Suspect]
     Indication: MULTIPLE SCLEROSIS
     Route: 048
     Dates: start: 20130828
  2. TECFIDERA [Suspect]
     Indication: MULTIPLE SCLEROSIS
     Route: 048
  3. CYMBALTA [Concomitant]
  4. SEROQUEL [Concomitant]
  5. GEODON [Concomitant]
  6. IBUPROFEN [Concomitant]
  7. CARISOPRODOL [Concomitant]
  8. HCTZ TRIAMT [Concomitant]
  9. AMITRIPTYLIN [Concomitant]
  10. PROMETHAZINE [Concomitant]
  11. DEPAKOTE [Concomitant]

REACTIONS (2)
  - Overdose [Recovered/Resolved]
  - Memory impairment [Recovered/Resolved]
